FAERS Safety Report 18324786 (Version 2)
Quarter: 2021Q4

REPORT INFORMATION
  Report Type: Spontaneous
  Country: US (occurrence: US)
  Receive Date: 20200929
  Receipt Date: 20211019
  Transmission Date: 20220304
  Serious: No
  Sender: FDA-Public Use
  Company Number: US-HORIZON-PRO-0223-2020

PATIENT
  Sex: Male
  Weight: 104.3 kg

DRUGS (1)
  1. PROCYSBI [Suspect]
     Active Substance: CYSTEAMINE BITARTRATE
     Indication: Cystinosis
     Dosage: TWENTY CAPSULES TWICE A DAY
     Dates: end: 2019

REACTIONS (2)
  - Drug intolerance [Unknown]
  - Product dose omission issue [Unknown]
